FAERS Safety Report 5181074-X (Version None)
Quarter: 2006Q4

REPORT INFORMATION
  Report Type: 
  Country: None (occurrence: None)
  Receive Date: 20061220
  Receipt Date: 20061211
  Transmission Date: 20070319
  Serious: Yes (Hospitalization)
  Sender: FDA-Public Use
  Company Number: PHBS2006GT19102

PATIENT
  Age: 89 Year
  Sex: Female

DRUGS (3)
  1. ZELMAC [Concomitant]
     Dosage: 6 MG, BID
     Route: 048
  2. RYTHMOL [Concomitant]
     Dosage: 150 MG, BID
     Route: 048
  3. CO-DIOVAN [Suspect]
     Indication: HYPERTENSION
     Dosage: 160 / 12.5 MG/DAY
     Route: 048
     Dates: start: 19960101, end: 20060915

REACTIONS (10)
  - BLOOD POTASSIUM DECREASED [None]
  - BLOOD SODIUM DECREASED [None]
  - FOOT FRACTURE [None]
  - FRACTURE [None]
  - HAEMOGLOBIN DECREASED [None]
  - HYPOKALAEMIA [None]
  - HYPONATRAEMIA [None]
  - HYPOTHYROIDISM [None]
  - NORMOCHROMIC NORMOCYTIC ANAEMIA [None]
  - RADIUS FRACTURE [None]
